FAERS Safety Report 13081116 (Version 1)
Quarter: 2017Q1

REPORT INFORMATION
  Report Type: Report from Study
  Country: IN (occurrence: IN)
  Receive Date: 20170103
  Receipt Date: 20170103
  Transmission Date: 20170428
  Serious: Yes (Death, Hospitalization, Other)
  Sender: FDA-Public Use
  Company Number: IN-BAXTER-2016BAX065618

PATIENT
  Age: 67 Year
  Sex: Male

DRUGS (4)
  1. AMLONG [Concomitant]
     Indication: HYPERTENSION
     Route: 065
  2. EXTRANEAL [Suspect]
     Active Substance: CALCIUM CHLORIDE\ICODEXTRIN\MAGNESIUM CHLORIDE\SODIUM CHLORIDE\SODIUM LACTATE
     Indication: PERITONEAL DIALYSIS
     Route: 033
     Dates: start: 20120731, end: 201612
  3. INSULIN (UNSPECIFIED) [Concomitant]
     Indication: DIABETES MELLITUS
     Route: 065
  4. PERITONEAL DIALYSIS SOLUTION WITH 2.5% DEXTROSE [Suspect]
     Active Substance: CALCIUM CHLORIDE\DEXTROSE\MAGNESIUM CHLORIDE\SODIUM CHLORIDE\SODIUM LACTATE
     Indication: PERITONEAL DIALYSIS
     Route: 033
     Dates: start: 20120731, end: 201612

REACTIONS (4)
  - Death [Fatal]
  - Nervous system disorder [Unknown]
  - Mobility decreased [Unknown]
  - Loss of consciousness [Unknown]

NARRATIVE: CASE EVENT DATE: 201612
